FAERS Safety Report 5090493-1 (Version None)
Quarter: 2006Q3

REPORT INFORMATION
  Report Type: 
  Country: None (occurrence: None)
  Receive Date: 20060828
  Receipt Date: 20060516
  Transmission Date: 20061208
  Serious: No
  Sender: FDA-Public Use
  Company Number: US-GLAXOSMITHKLINE-A0605820A

PATIENT
  Age: 69 Year
  Sex: Male

DRUGS (5)
  1. WELLBUTRIN XL [Suspect]
     Indication: DEPRESSION
     Dosage: 150MG PER DAY
     Route: 048
     Dates: start: 20060227, end: 20060306
  2. CARBIDOPA AND LEVODOPA [Concomitant]
  3. PRILOSEC [Concomitant]
  4. DURAGESIC-100 [Concomitant]
  5. HYDROCODONE BITARTRATE [Concomitant]

REACTIONS (1)
  - NIGHTMARE [None]
